FAERS Safety Report 5127090-5 (Version None)
Quarter: 2006Q4

REPORT INFORMATION
  Report Type: 
  Country: None (occurrence: None)
  Receive Date: 20061013
  Receipt Date: 20061005
  Transmission Date: 20070319
  Serious: Yes (Other)
  Sender: FDA-Public Use
  Company Number: US-ABBOTT-06P-163-0346017-00

PATIENT
  Age: 3 Year

DRUGS (2)
  1. SEVOFLURANE [Suspect]
     Indication: INDUCTION OF ANAESTHESIA
     Dosage: NOT REPORTED
  2. SEVOFLURANE [Suspect]
     Dosage: NOT REPORTED

REACTIONS (3)
  - BLOOD CREATINE PHOSPHOKINASE INCREASED [None]
  - CARBON DIOXIDE INCREASED [None]
  - MUSCLE RIGIDITY [None]
